FAERS Safety Report 4488725-3 (Version None)
Quarter: 2004Q4

REPORT INFORMATION
  Report Type: 
  Country: None (occurrence: None)
  Receive Date: 20041025
  Receipt Date: 20041012
  Transmission Date: 20050328
  Serious: Yes (Hospitalization, Other)
  Sender: FDA-Public Use
  Company Number: 2004077862

PATIENT
  Age: 50 Year
  Sex: Male

DRUGS (4)
  1. PHENYTOIN [Suspect]
     Indication: STATUS EPILEPTICUS
  2. OXCARBAZEPINE (OXCARBAZEPINE) [Suspect]
     Indication: STATUS EPILEPTICUS
  3. PHENOBARBITAL TAB [Suspect]
     Indication: STATUS EPILEPTICUS
  4. LAMOTRIGINE [Suspect]
     Indication: STATUS EPILEPTICUS

REACTIONS (6)
  - ABASIA [None]
  - MYOPATHY [None]
  - OSTEOPOROTIC FRACTURE [None]
  - PARAPARESIS [None]
  - SPINAL COMPRESSION FRACTURE [None]
  - SPINAL CORD COMPRESSION [None]
